FAERS Safety Report 8404214-5 (Version None)
Quarter: 2012Q2

REPORT INFORMATION
  Report Type: 
  Country: None (occurrence: None)
  Receive Date: 20120601
  Receipt Date: 20120524
  Transmission Date: 20120825
  Serious: Yes (Other)
  Sender: FDA-Public Use
  Company Number: GB-JNJFOC-20120408438

PATIENT
  Sex: Female

DRUGS (2)
  1. GOLIMUMAB [Suspect]
     Indication: RHEUMATOID ARTHRITIS
     Route: 058
     Dates: start: 20120315
  2. GOLIMUMAB [Suspect]
     Route: 058

REACTIONS (2)
  - LOCALISED INFECTION [None]
  - INFECTED SKIN ULCER [None]
